FAERS Safety Report 4744636-7 (Version None)
Quarter: 2005Q3

REPORT INFORMATION
  Report Type: 
  Country: None (occurrence: None)
  Receive Date: 20050812
  Receipt Date: 20050812
  Transmission Date: 20060218
  Serious: Yes (Disabling)
  Sender: FDA-Public Use
  Company Number: None

PATIENT
  Age: 50 Year
  Sex: Male
  Weight: 86.637 kg

DRUGS (6)
  1. VALTREX [Suspect]
     Indication: HERPES SIMPLEX
     Dosage: 1 TABLET  DAILY  ORAL
     Route: 048
     Dates: start: 20020101, end: 20050701
  2. VALTREX [Suspect]
     Indication: HERPES ZOSTER
     Dosage: 1 TABLET  DAILY  ORAL
     Route: 048
     Dates: start: 20020101, end: 20050701
  3. VALTREX [Suspect]
     Indication: PROPHYLAXIS
     Dosage: 1 TABLET  DAILY  ORAL
     Route: 048
     Dates: start: 20020101, end: 20050701
  4. VALTREX [Suspect]
     Indication: HERPES SIMPLEX
     Dosage: 1 TABLET  DAILY  ORAL
     Route: 048
     Dates: start: 20050708, end: 20050802
  5. VALTREX [Suspect]
     Indication: HERPES ZOSTER
     Dosage: 1 TABLET  DAILY  ORAL
     Route: 048
     Dates: start: 20050708, end: 20050802
  6. VALTREX [Suspect]
     Indication: PROPHYLAXIS
     Dosage: 1 TABLET  DAILY  ORAL
     Route: 048
     Dates: start: 20050708, end: 20050802

REACTIONS (3)
  - VISION BLURRED [None]
  - VISUAL DISTURBANCE [None]
  - VISUAL FIELD DEFECT [None]
